FAERS Safety Report 17352060 (Version 4)
Quarter: 2020Q3

REPORT INFORMATION
  Report Type: Spontaneous
  Country: NL (occurrence: NL)
  Receive Date: 20200130
  Receipt Date: 20200930
  Transmission Date: 20201102
  Serious: Yes (Death)
  Sender: FDA-Public Use
  Company Number: NL-JNJFOC-20200137071

PATIENT
  Age: 74 Year
  Sex: Female
  Weight: 128 kg

DRUGS (9)
  1. SERTRALINE [Concomitant]
     Active Substance: SERTRALINE HYDROCHLORIDE
     Route: 048
     Dates: start: 20180125
  2. FRAXIPARINE [Concomitant]
     Active Substance: NADROPARIN CALCIUM
     Route: 058
     Dates: start: 20180125
  3. AMLODIPINE [Concomitant]
     Active Substance: AMLODIPINE BESYLATE
     Route: 048
     Dates: start: 20180125
  4. HYZAAR [Concomitant]
     Active Substance: HYDROCHLOROTHIAZIDE\LOSARTAN POTASSIUM
     Dosage: 50MG/12.5MG
     Route: 048
     Dates: start: 20180125
  5. STELARA [Suspect]
     Active Substance: USTEKINUMAB
     Indication: CROHN^S DISEASE
     Route: 058
     Dates: start: 20180202, end: 20180202
  6. LOPERAMIDE [Concomitant]
     Active Substance: LOPERAMIDE
     Route: 048
     Dates: start: 20180125
  7. PANTOPRAZOLE [Concomitant]
     Active Substance: PANTOPRAZOLE
     Route: 048
     Dates: start: 20180125
  8. SIMVASTATINE [Concomitant]
     Active Substance: SIMVASTATIN
     Dates: start: 20180125
  9. AUGMENTIN [Concomitant]
     Active Substance: AMOXICILLIN\CLAVULANATE POTASSIUM
     Route: 042
     Dates: start: 20180202

REACTIONS (3)
  - Product use in unapproved indication [Unknown]
  - Pneumonia [Fatal]
  - Off label use [Unknown]

NARRATIVE: CASE EVENT DATE: 20180202
